FAERS Safety Report 12767833 (Version 2)
Quarter: 2016Q3

REPORT INFORMATION
  Report Type: Spontaneous
  Country: US (occurrence: US)
  Receive Date: 20160921
  Receipt Date: 20160928
  Transmission Date: 20161109
  Serious: Yes (Hospitalization, Other)
  Sender: FDA-Public Use
  Company Number: US-MYLANLABS-2016M1039773

PATIENT

DRUGS (2)
  1. HALDOL [Suspect]
     Active Substance: HALOPERIDOL
     Dosage: UNK
  2. ALPRAZOLAM TABLETS, USP [Suspect]
     Active Substance: ALPRAZOLAM
     Indication: ANXIETY
     Dosage: 1 MG, QID
     Route: 048
     Dates: start: 201208

REACTIONS (17)
  - Nausea [Not Recovered/Not Resolved]
  - Withdrawal syndrome [Recovered/Resolved]
  - Pain in extremity [Not Recovered/Not Resolved]
  - Oral mucosal blistering [Not Recovered/Not Resolved]
  - Transient ischaemic attack [Recovered/Resolved]
  - Peripheral swelling [Not Recovered/Not Resolved]
  - Joint swelling [Not Recovered/Not Resolved]
  - Hypoaesthesia [Not Recovered/Not Resolved]
  - Aggression [Not Recovered/Not Resolved]
  - Vertigo [Not Recovered/Not Resolved]
  - Loss of consciousness [Not Recovered/Not Resolved]
  - Weight increased [Not Recovered/Not Resolved]
  - Abdominal pain [Not Recovered/Not Resolved]
  - Diarrhoea [Not Recovered/Not Resolved]
  - Urinary incontinence [Not Recovered/Not Resolved]
  - Mood swings [Not Recovered/Not Resolved]
  - Angina unstable [Not Recovered/Not Resolved]

NARRATIVE: CASE EVENT DATE: 2012
